FAERS Safety Report 10862085 (Version 2)
Quarter: 2015Q1

REPORT INFORMATION
  Report Type: Spontaneous
  Country: US (occurrence: US)
  Receive Date: 20150224
  Receipt Date: 20150312
  Transmission Date: 20150721
  Serious: Yes (Hospitalization)
  Sender: FDA-Public Use
  Company Number: US-SA-2015SA021291

PATIENT
  Age: 33 Year
  Sex: Female
  Weight: 91 kg

DRUGS (21)
  1. LEVOTHYROXINE [Concomitant]
     Active Substance: LEVOTHYROXINE
     Dosage: 1 TAB 1/2 HOUR BEFORE BREAKFAST
  2. FLEXPEN [Concomitant]
     Active Substance: UNSPECIFIED INGREDIENT
  3. NORTRIPTYLINE [Concomitant]
     Active Substance: NORTRIPTYLINE
  4. FERROUS SULFATE [Concomitant]
     Active Substance: FERROUS SULFATE\FERROUS SULFATE, DRIED
     Dosage: DOSE: 1 TAB 1/2 HOUR AFTER NOVOLOG FELXPEN 11-12 LUNCH?1 TAB AT BED 9.30 PM
  5. NOVOLOG [Concomitant]
     Active Substance: INSULIN ASPART
     Dosage: DOSE: 10 UNIT 6-7 AM AND 11-12 05:30- 6 PM
  6. LISINOPRIL. [Concomitant]
     Active Substance: LISINOPRIL
  7. SOLOSTAR [Concomitant]
     Active Substance: DEVICE
     Indication: TYPE 2 DIABETES MELLITUS
     Dates: start: 2012
  8. ROBAXIN [Concomitant]
     Active Substance: METHOCARBAMOL
     Dosage: DOSE: 1 TAB BETWEEN 6-7 AM/11-12/5.30-6 PM/9.30 PM
  9. OXYCODONE [Concomitant]
     Active Substance: OXYCODONE
     Dosage: EVERY 4 HOURS AS NEEDED
  10. VITAMIN B2 [Concomitant]
     Active Substance: RIBOFLAVIN
  11. LANTUS SOLOSTAR [Suspect]
     Active Substance: INSULIN GLARGINE
     Indication: TYPE 2 DIABETES MELLITUS
     Dosage: DOSE:20 UNIT(S)
     Route: 065
  12. BENADRYL [Concomitant]
     Active Substance: DIPHENHYDRAMINE HYDROCHLORIDE
  13. TOPIRAMATE. [Concomitant]
     Active Substance: TOPIRAMATE
     Dosage: 1 TAB BETWEEN 6-7 AM--1 AND 1/2 TAB5.30-6 PM
  14. LANTUS SOLOSTAR [Suspect]
     Active Substance: INSULIN GLARGINE
     Indication: TYPE 2 DIABETES MELLITUS
     Dosage: DOSE:35 UNIT(S)
     Route: 065
     Dates: start: 2012
  15. SOLOSTAR [Concomitant]
     Active Substance: DEVICE
     Indication: TYPE 2 DIABETES MELLITUS
  16. LIPITOR [Concomitant]
     Active Substance: ATORVASTATIN CALCIUM
  17. MAGNESIUM [Concomitant]
     Active Substance: MAGNESIUM
  18. CARBAMAZEPINE. [Concomitant]
     Active Substance: CARBAMAZEPINE
  19. GABAPENTIN. [Concomitant]
     Active Substance: GABAPENTIN
     Dosage: GABAPENTIN 100 MG?2 TAB BETWEEN 6-7 AM/11-12/ 5.30-6 PM?1 TAB AT 9.30 PM
  20. GABAPENTIN. [Concomitant]
     Active Substance: GABAPENTIN
     Dosage: GABAPENTIN 300 MG ?1 TAB BETWEEN 6-7 AM/11-12/ 5.30-6 PM?2 TAB AT 9.30 PM
  21. TYLENOL [Concomitant]
     Active Substance: ACETAMINOPHEN

REACTIONS (3)
  - Small intestine carcinoma metastatic [Unknown]
  - Metastases to lung [Unknown]
  - Drug administration error [Unknown]
